FAERS Safety Report 7698758-1 (Version None)
Quarter: 2011Q3

REPORT INFORMATION
  Report Type: 
  Country: None (occurrence: None)
  Receive Date: 20110819
  Receipt Date: 20110810
  Transmission Date: 20111222
  Serious: Yes (Life-Threatening, Hospitalization)
  Sender: FDA-Public Use
  Company Number: JP-JNJFOC-20110803934

PATIENT
  Sex: Female
  Weight: 43 kg

DRUGS (10)
  1. MERISLON [Concomitant]
     Indication: DIZZINESS
     Route: 048
     Dates: start: 20100318
  2. WARFARIN SODIUM [Interacting]
     Indication: ATRIAL FIBRILLATION
     Route: 048
     Dates: start: 20090818
  3. DIART [Concomitant]
     Indication: HYPERTENSION
     Route: 048
     Dates: start: 20100716
  4. AMLODIN OD [Concomitant]
     Indication: HYPERTENSION
     Route: 048
     Dates: start: 20090818
  5. PANVITAN [Concomitant]
     Indication: HYPOVITAMINOSIS
     Route: 048
     Dates: start: 20100818
  6. MICONAZOLE [Suspect]
     Indication: ORAL FUNGAL INFECTION
     Dosage: 5G, 4 TIMES A DAY
     Route: 049
     Dates: start: 20110625, end: 20110702
  7. LENDORMIN [Concomitant]
     Route: 048
  8. METHYCOBAL [Concomitant]
     Indication: NEUROPATHY PERIPHERAL
     Route: 048
     Dates: start: 20100219
  9. CEROCRAL [Concomitant]
     Indication: CEREBRAL INFARCTION
     Route: 048
     Dates: start: 20100318
  10. MICONAZOLE [Suspect]
     Route: 049

REACTIONS (4)
  - INTERNATIONAL NORMALISED RATIO INCREASED [None]
  - DRUG INTERACTION [None]
  - HAEMATOMA [None]
  - HAEMORRHAGE SUBCUTANEOUS [None]
